FAERS Safety Report 5315246-8 (Version None)
Quarter: 2007Q2

REPORT INFORMATION
  Report Type: 
  Country: None (occurrence: None)
  Receive Date: 20070427
  Receipt Date: 20070419
  Transmission Date: 20071010
  Serious: Yes (Other)
  Sender: FDA-Public Use
  Company Number: 2007SP007399

PATIENT
  Age: 44 Year
  Sex: Female
  Weight: 99.7913 kg

DRUGS (5)
  1. CLARINEX [Suspect]
     Indication: SEASONAL ALLERGY
     Dosage: PO
     Route: 048
  2. TRANSDERM SCOP [Suspect]
     Indication: DIZZINESS
     Dosage: PRN; TDER
     Route: 062
     Dates: end: 20070324
  3. FLONASE (CON.) [Concomitant]
  4. CONTRACEPTIVES NOS (CON.) [Concomitant]
  5. XANAX (CON.) [Concomitant]

REACTIONS (4)
  - ANXIETY [None]
  - CHEST DISCOMFORT [None]
  - DEHYDRATION [None]
  - UNEVALUABLE EVENT [None]
